FAERS Safety Report 5279999-X (Version None)
Quarter: 2007Q1

REPORT INFORMATION
  Report Type: 
  Country: None (occurrence: None)
  Receive Date: 20070327
  Receipt Date: 20070327
  Transmission Date: 20070707
  Serious: Yes (Hospitalization)
  Sender: FDA-Public Use
  Company Number: None

PATIENT
  Sex: Female
  Weight: 86.3 kg

DRUGS (4)
  1. CYCLOPHOSPHAMIDE [Suspect]
     Dosage: 4000 MG
     Dates: end: 20061204
  2. MELPHALAN [Suspect]
     Dosage: 320 MG
     Dates: end: 20061227
  3. NEUPOGEN [Concomitant]
  4. VALSARTAN [Concomitant]

REACTIONS (11)
  - ATRIAL SEPTAL DEFECT [None]
  - CARDIAC ANEURYSM [None]
  - CONVULSION [None]
  - DYSPNOEA [None]
  - HYPOTENSION [None]
  - HYPOXIA [None]
  - RESPIRATORY ALKALOSIS [None]
  - RESPIRATORY ARREST [None]
  - SPLENIC INFARCTION [None]
  - SYNCOPE [None]
  - TREMOR [None]
